FAERS Safety Report 5030341-9 (Version None)
Quarter: 2006Q2

REPORT INFORMATION
  Report Type: 
  Country: None (occurrence: None)
  Receive Date: 20060614
  Receipt Date: 20060526
  Transmission Date: 20061013
  Serious: Yes (Death, Other)
  Sender: FDA-Public Use
  Company Number: US200604002858

PATIENT
  Age: 95 Year
  Sex: Female

DRUGS (2)
  1. FORTEO [Suspect]
  2. FORTEO [Concomitant]

REACTIONS (2)
  - FALL [None]
  - SUBDURAL HAEMATOMA [None]
